FAERS Safety Report 5860551-X (Version None)
Quarter: 2008Q3

REPORT INFORMATION
  Report Type: 
  Country: None (occurrence: None)
  Receive Date: 20080827
  Receipt Date: 20070907
  Transmission Date: 20090109
  Serious: No
  Sender: FDA-Public Use
  Company Number: US-ABBOTT-07P-163-0416363-00

PATIENT
  Sex: Female
  Weight: 65.376 kg

DRUGS (11)
  1. NIASPAN [Suspect]
     Indication: BLOOD TRIGLYCERIDES INCREASED
     Dosage: WHITE
     Route: 048
     Dates: start: 20060101, end: 20070820
  2. NIASPAN [Suspect]
     Dosage: ORANGE
     Dates: start: 20070820, end: 20070823
  3. NIASPAN [Suspect]
     Dosage: WHITE
     Dates: start: 20070823, end: 20070906
  4. NIASPAN [Suspect]
     Dosage: ORANGE
     Dates: start: 20070906
  5. CLOPIDOGREL [Concomitant]
     Indication: DRUG USE FOR UNKNOWN INDICATION
     Route: 048
  6. CLOPIDOGREL [Concomitant]
  7. CLOPIDOGREL [Concomitant]
  8. ATENOLOL [Concomitant]
     Indication: DRUG USE FOR UNKNOWN INDICATION
     Route: 048
  9. SIMVASTATIN [Concomitant]
     Indication: DRUG USE FOR UNKNOWN INDICATION
     Route: 048
  10. NIFEDAPINE [Concomitant]
     Indication: DRUG USE FOR UNKNOWN INDICATION
     Route: 048
  11. FOSINOPRIL SODIUM [Concomitant]
     Indication: DRUG USE FOR UNKNOWN INDICATION
     Route: 048

REACTIONS (1)
  - FLUSHING [None]
